FAERS Safety Report 12617307 (Version 1)
Quarter: 2016Q3

REPORT INFORMATION
  Report Type: Spontaneous
  Country: CA (occurrence: CA)
  Receive Date: 20160803
  Receipt Date: 20160803
  Transmission Date: 20161109
  Serious: Yes (Other)
  Sender: FDA-Public Use
  Company Number: CA-BAUSCH-BL-2016-018058

PATIENT
  Age: 60 Year
  Sex: Female
  Weight: 81.72 kg

DRUGS (1)
  1. MURO 128 [Suspect]
     Active Substance: SODIUM CHLORIDE
     Indication: EYE INFLAMMATION
     Route: 047

REACTIONS (3)
  - Corneal abrasion [Unknown]
  - Product deposit [Unknown]
  - Eye pain [Unknown]

NARRATIVE: CASE EVENT DATE: 20160722
